FAERS Safety Report 10881206 (Version 1)
Quarter: 2015Q1

REPORT INFORMATION
  Report Type: Spontaneous
  Country: US (occurrence: US)
  Receive Date: 20150303
  Receipt Date: 20150303
  Transmission Date: 20150721
  Serious: No
  Sender: FDA-Public Use
  Company Number: US-PFIZER INC-2015071747

PATIENT
  Sex: Female

DRUGS (1)
  1. RELPAX [Suspect]
     Active Substance: ELETRIPTAN HYDROBROMIDE
     Indication: MIGRAINE
     Dosage: 40 MG, AS NEEDED (PRN)
     Route: 048

REACTIONS (4)
  - Product quality issue [Unknown]
  - Emotional disorder [Unknown]
  - Musculoskeletal stiffness [Unknown]
  - Dysphagia [Unknown]
